FAERS Safety Report 4934955-3 (Version None)
Quarter: 2006Q1

REPORT INFORMATION
  Report Type: 
  Country: None (occurrence: None)
  Receive Date: 20060303
  Receipt Date: 20060303
  Transmission Date: 20060701
  Serious: Yes (Hospitalization)
  Sender: FDA-Public Use
  Company Number: None

PATIENT
  Sex: Female
  Weight: 50.8029 kg

DRUGS (3)
  1. GEMZAR [Suspect]
     Indication: OVARIAN CANCER
     Dosage: 1700 MG    DAY 1, DAY 8   IV DRIP
     Route: 041
     Dates: start: 20060125, end: 20060222
  2. GEMZAR [Suspect]
  3. CARBOPLATIN [Suspect]
     Indication: OVARIAN CANCER
     Dosage: 435 MG    DAY 1    IV DRIP
     Route: 041
     Dates: start: 20060125, end: 20060215

REACTIONS (3)
  - DEHYDRATION [None]
  - NAUSEA [None]
  - VOMITING [None]
